FAERS Safety Report 6147199-7 (Version None)
Quarter: 2009Q2

REPORT INFORMATION
  Report Type: 
  Country: None (occurrence: None)
  Receive Date: 20090407
  Receipt Date: 20090108
  Transmission Date: 20091009
  Serious: Yes (Death)
  Sender: FDA-Public Use
  Company Number: US-TYCO HEALTHCARE/MALLINCKRODT-T200900033

PATIENT
  Age: 3 Year
  Sex: Male

DRUGS (1)
  1. METHADOSE [Suspect]
     Dosage: UNK
     Dates: start: 20081222, end: 20081222

REACTIONS (2)
  - DRUG TOXICITY [None]
  - OVERDOSE [None]
